FAERS Safety Report 9800095 (Version 1)
Quarter: 2014Q1

REPORT INFORMATION
  Report Type: Spontaneous
  Country: US (occurrence: US)
  Receive Date: 20140106
  Receipt Date: 20140106
  Transmission Date: 20141002
  Serious: No
  Sender: FDA-Public Use
  Company Number: US-GILEAD-2010-0032465

PATIENT
  Age: 60 Year
  Sex: Female
  Weight: 72.57 kg

DRUGS (11)
  1. LETAIRIS [Suspect]
     Indication: PULMONARY ARTERIAL HYPERTENSION
     Route: 048
     Dates: start: 20090130
  2. ATENOLOL [Concomitant]
  3. LOSARTIN [Concomitant]
  4. CRESTOR [Concomitant]
  5. ASPIRIN [Concomitant]
  6. NASAREL [Concomitant]
  7. PRILOSEC [Concomitant]
  8. PROZAC [Concomitant]
  9. ELAVIL [Concomitant]
  10. KEFLEX [Concomitant]
  11. MULTIVITAMIN [Concomitant]

REACTIONS (2)
  - Inappropriate schedule of drug administration [Recovered/Resolved with Sequelae]
  - Headache [Recovered/Resolved with Sequelae]
